FAERS Safety Report 20492086 (Version 9)
Quarter: 2023Q2

REPORT INFORMATION
  Report Type: Report from Study
  Country: CN (occurrence: None)
  Receive Date: 20220218
  Receipt Date: 20230524
  Transmission Date: 20230721
  Serious: Yes (Death, Life-Threatening, Hospitalization)
  Sender: FDA-Public Use
  Company Number: CN-Eisai Medical Research-EC-2022-109122

PATIENT
  Age: 59 Year
  Sex: Male
  Weight: 63 kg

DRUGS (11)
  1. LENVATINIB [Suspect]
     Active Substance: LENVATINIB
     Indication: Non-small cell lung cancer metastatic
     Route: 048
     Dates: start: 20200516, end: 20220215
  2. PEMBROLIZUMAB [Suspect]
     Active Substance: PEMBROLIZUMAB
     Indication: Non-small cell lung cancer metastatic
     Route: 041
     Dates: start: 20200516, end: 20220118
  3. PEMBROLIZUMAB [Suspect]
     Active Substance: PEMBROLIZUMAB
     Route: 041
     Dates: start: 20220210, end: 20220210
  4. PEMETREXED [Suspect]
     Active Substance: PEMETREXED
     Indication: Non-small cell lung cancer metastatic
     Route: 042
     Dates: start: 20200516, end: 20220118
  5. PEMETREXED [Suspect]
     Active Substance: PEMETREXED
     Route: 042
     Dates: start: 20220210, end: 20220210
  6. CISPLATIN [Suspect]
     Active Substance: CISPLATIN
     Indication: Non-small cell lung cancer metastatic
     Route: 042
     Dates: start: 20200216, end: 20200721
  7. FOLIC ACID [Concomitant]
     Active Substance: FOLIC ACID
     Dates: start: 20200508, end: 20220216
  8. BICYCLOL [Concomitant]
     Active Substance: BICYCLOL
     Dates: start: 20201014, end: 20220216
  9. DEXAMETHASONE [Concomitant]
     Active Substance: DEXAMETHASONE
     Dates: start: 20220209, end: 20220211
  10. ONDANSETRON [Concomitant]
     Active Substance: ONDANSETRON
     Route: 030
     Dates: start: 20220210, end: 20220211
  11. BUDESONIDE [Concomitant]
     Active Substance: BUDESONIDE
     Dates: start: 20220211, end: 20220215

REACTIONS (1)
  - Tracheal haemorrhage [Fatal]

NARRATIVE: CASE EVENT DATE: 20220215
